FAERS Safety Report 7577251-0 (Version None)
Quarter: 2011Q2

REPORT INFORMATION
  Report Type: 
  Country: None (occurrence: None)
  Receive Date: 20110628
  Receipt Date: 20110615
  Transmission Date: 20111010
  Serious: Yes (Hospitalization, Other)
  Sender: FDA-Public Use
  Company Number: US-BAYER-201032457NA

PATIENT
  Age: 35 Year
  Sex: Female
  Weight: 138.32 kg

DRUGS (3)
  1. ADVIL LIQUI-GELS [Concomitant]
  2. YAZ [Suspect]
     Indication: PRODUCT USED FOR UNKNOWN INDICATION
     Dosage: UNK
     Route: 048
     Dates: start: 20030101, end: 20090101
  3. MOTRIN [Concomitant]

REACTIONS (2)
  - PULMONARY EMBOLISM [None]
  - INFARCTION [None]
